FAERS Safety Report 12932671 (Version 1)
Quarter: 2016Q4

REPORT INFORMATION
  Report Type: Report from Study
  Country: BR (occurrence: BR)
  Receive Date: 20161111
  Receipt Date: 20161111
  Transmission Date: 20170207
  Serious: Yes (Other)
  Sender: FDA-Public Use
  Company Number: PHHY2016BR153400

PATIENT
  Sex: Female
  Weight: 67 kg

DRUGS (1)
  1. FORASEQ [Suspect]
     Active Substance: BUDESONIDE\FORMOTEROL FUMARATE
     Indication: ASTHMA
     Dosage: 1 DF (BUDESONIDE 400 UG, FORMOTEROL FUMARATE 12 UG), QD
     Route: 055

REACTIONS (5)
  - Asthma [Not Recovered/Not Resolved]
  - Cough [Unknown]
  - Neoplasm malignant [Not Recovered/Not Resolved]
  - Chest discomfort [Recovering/Resolving]
  - Nasopharyngitis [Not Recovered/Not Resolved]

NARRATIVE: CASE EVENT DATE: 2013
